FAERS Safety Report 8517052-X (Version None)
Quarter: 2012Q3

REPORT INFORMATION
  Report Type: 
  Country: None (occurrence: None)
  Receive Date: 20120706
  Receipt Date: 20120626
  Transmission Date: 20120928
  Serious: Yes (Death)
  Sender: FDA-Public Use
  Company Number: ADR-2012-01207

PATIENT
  Age: 70 Year
  Sex: Male

DRUGS (2)
  1. LIORESAL [Suspect]
     Indication: CEREBROVASCULAR ACCIDENT
     Dosage: 674.0 MCG/DAY
  2. LIORESAL [Suspect]
     Indication: MUSCLE SPASTICITY
     Dosage: 674.0 MCG/DAY

REACTIONS (1)
  - PNEUMONIA [None]
